FAERS Safety Report 16942069 (Version 4)
Quarter: 2019Q4

REPORT INFORMATION
  Report Type: Report from Study
  Country: US (occurrence: US)
  Receive Date: 20191021
  Receipt Date: 20191127
  Transmission Date: 20200122
  Serious: Yes (Hospitalization)
  Sender: FDA-Public Use
  Company Number: US-EISAI MEDICAL RESEARCH-EC-2019-063313

PATIENT
  Age: 81 Year
  Sex: Female

DRUGS (9)
  1. LENVIMA [Suspect]
     Active Substance: LENVATINIB
     Route: 048
     Dates: start: 20191004, end: 20191006
  2. LENVIMA [Suspect]
     Active Substance: LENVATINIB
     Route: 048
     Dates: start: 20191030, end: 20191030
  3. LENVIMA [Suspect]
     Active Substance: LENVATINIB
     Dosage: TOOK 4 MG BID INSTEAD OF 8 MG IN A SINGLE DOSE
     Route: 048
     Dates: start: 20191007, end: 20191007
  4. COLACE [Concomitant]
     Active Substance: DOCUSATE SODIUM
  5. LENVIMA [Suspect]
     Active Substance: LENVATINIB
     Indication: HEPATIC CANCER
     Route: 048
     Dates: start: 20190928, end: 20191002
  6. LENVIMA [Suspect]
     Active Substance: LENVATINIB
     Route: 048
     Dates: start: 201910, end: 20191016
  7. LENVIMA [Suspect]
     Active Substance: LENVATINIB
     Route: 048
     Dates: start: 20191024, end: 20191029
  8. LENVIMA [Suspect]
     Active Substance: LENVATINIB
     Route: 048
     Dates: start: 20191031, end: 2019
  9. METOPROLOL. [Concomitant]
     Active Substance: METOPROLOL

REACTIONS (10)
  - Urinary tract infection [Recovering/Resolving]
  - Confusional state [Not Recovered/Not Resolved]
  - Inappropriate schedule of product administration [Recovered/Resolved]
  - Hypertension [Recovering/Resolving]
  - Diarrhoea [Recovering/Resolving]
  - Anger [Not Recovered/Not Resolved]
  - Accidental overdose [Recovered/Resolved]
  - Nausea [Recovering/Resolving]
  - Muscle spasms [Not Recovered/Not Resolved]
  - Agitation [Not Recovered/Not Resolved]

NARRATIVE: CASE EVENT DATE: 2019
